FAERS Safety Report 12891379 (Version 1)
Quarter: 2016Q4

REPORT INFORMATION
  Report Type: Spontaneous
  Country: CA (occurrence: CA)
  Receive Date: 20161028
  Receipt Date: 20161028
  Transmission Date: 20170207
  Serious: Yes (Other)
  Sender: FDA-Public Use
  Company Number: CA-AMGEN-CANSP2016146831

PATIENT
  Age: 56 Year
  Sex: Male

DRUGS (3)
  1. PROLIA [Suspect]
     Active Substance: DENOSUMAB
     Indication: PRODUCT USED FOR UNKNOWN INDICATION
     Dosage: UNK
     Route: 065
  2. SANDOSTATIN [Suspect]
     Active Substance: OCTREOTIDE ACETATE
     Dosage: 30 MG, QMO
     Route: 030
  3. SANDOSTATIN [Suspect]
     Active Substance: OCTREOTIDE ACETATE
     Indication: GASTROINTESTINAL NECROSIS
     Dosage: 10 MG, QMO
     Route: 030

REACTIONS (7)
  - Pyrexia [Unknown]
  - Cough [Unknown]
  - Blood pressure systolic increased [Unknown]
  - Pruritus [Unknown]
  - Nasopharyngitis [Unknown]
  - Pemphigoid [Unknown]
  - Stress [Unknown]
